FAERS Safety Report 13804984 (Version 2)
Quarter: 2017Q4

REPORT INFORMATION
  Report Type: Spontaneous
  Country: US (occurrence: US)
  Receive Date: 20170728
  Receipt Date: 20171020
  Transmission Date: 20180320
  Serious: No
  Sender: FDA-Public Use
  Company Number: US-PFIZER INC-2017325543

PATIENT
  Sex: Female

DRUGS (1)
  1. PROMETHAZINE HCL [Suspect]
     Active Substance: PROMETHAZINE HYDROCHLORIDE
     Dosage: UNK

REACTIONS (3)
  - Drug hypersensitivity [Unknown]
  - Tremor [Unknown]
  - Restless legs syndrome [Unknown]
